FAERS Safety Report 15254823 (Version 1)
Quarter: 2018Q3

REPORT INFORMATION
  Report Type: Spontaneous
  Country: US (occurrence: US)
  Receive Date: 20180717
  Receipt Date: 20180717
  Transmission Date: 20181010
  Serious: Yes (Disabling)
  Sender: FDA-Public Use
  Company Number: None

PATIENT
  Age: 64 Year
  Sex: Male
  Weight: 90 kg

DRUGS (5)
  1. MAGNESIUM GLYCINATE [Concomitant]
     Active Substance: MAGNESIUM GLYCINATE
  2. ASPIRIN. [Concomitant]
     Active Substance: ASPIRIN
  3. RESTASIS [Concomitant]
     Active Substance: CYCLOSPORINE
  4. MULTIPLE VITAMIN [Concomitant]
     Active Substance: VITAMINS
  5. SILDENAFIL 20 MG TABLET [Suspect]
     Active Substance: SILDENAFIL
     Indication: LIBIDO DISORDER
     Dosage: ?          QUANTITY:40 TABLET(S);?
     Route: 048
     Dates: start: 20180530, end: 20180530

REACTIONS (3)
  - Feeling abnormal [None]
  - Extrasystoles [None]
  - Ventricular extrasystoles [None]

NARRATIVE: CASE EVENT DATE: 20180530
